FAERS Safety Report 4874029-3 (Version None)
Quarter: 2005Q4

REPORT INFORMATION
  Report Type: 
  Country: None (occurrence: None)
  Receive Date: 20051201
  Receipt Date: 20050807
  Transmission Date: 20060501
  Serious: No
  Sender: FDA-Public Use
  Company Number: 2005PV000942

PATIENT
  Age: 57 Year
  Sex: Female
  Weight: 83.0083 kg

DRUGS (8)
  1. BYETTA [Suspect]
     Indication: DIABETES MELLITUS NON-INSULIN-DEPENDENT
     Dosage: 5 MCG; BID; SC
     Route: 058
     Dates: start: 20050801
  2. THYROID TAB [Concomitant]
  3. BLOOD PRESSURE [Concomitant]
  4. ........... [Concomitant]
  5. CHOLESTEROL MEDICATION [Concomitant]
  6. EYE DROPS [Concomitant]
  7. AVANDIA [Concomitant]
  8. METFORMIN [Concomitant]

REACTIONS (2)
  - BLOOD GLUCOSE INCREASED [None]
  - DECREASED APPETITE [None]
